FAERS Safety Report 5193993-9 (Version None)
Quarter: 2006Q4

REPORT INFORMATION
  Report Type: 
  Country: None (occurrence: None)
  Receive Date: 20061228
  Receipt Date: 20060919
  Transmission Date: 20070319
  Serious: No
  Sender: FDA-Public Use
  Company Number: US-GLAXOSMITHKLINE-A0620704A

PATIENT
  Sex: Female

DRUGS (2)
  1. FLOVENT [Suspect]
     Indication: ASTHMA
     Route: 055
     Dates: start: 20060914
  2. PREDNISONE TAB [Concomitant]

REACTIONS (4)
  - BONE SWELLING [None]
  - GASTROOESOPHAGEAL REFLUX DISEASE [None]
  - ORAL PRURITUS [None]
  - PRURITUS [None]
